FAERS Safety Report 5484637-7 (Version None)
Quarter: 2007Q4

REPORT INFORMATION
  Report Type: 
  Country: None (occurrence: None)
  Receive Date: 20071012
  Receipt Date: 20071004
  Transmission Date: 20080405
  Serious: Yes (Other)
  Sender: FDA-Public Use
  Company Number: US-PFIZER INC-2007067107

PATIENT
  Sex: Female
  Weight: 56.7 kg

DRUGS (3)
  1. GEODON [Suspect]
     Indication: BIPOLAR II DISORDER
     Route: 048
  2. GEODON [Suspect]
     Indication: BIPOLAR DISORDER
  3. SEROQUEL [Concomitant]

REACTIONS (9)
  - AGGRESSION [None]
  - ANGER [None]
  - DEPRESSION [None]
  - DRUG INEFFECTIVE [None]
  - EATING DISORDER [None]
  - HOSTILITY [None]
  - MEMORY IMPAIRMENT [None]
  - NEGATIVE THOUGHTS [None]
  - WEIGHT INCREASED [None]
